FAERS Safety Report 5604628-2 (Version None)
Quarter: 2008Q1

REPORT INFORMATION
  Report Type: 
  Country: None (occurrence: None)
  Receive Date: 20080124
  Receipt Date: 20080124
  Transmission Date: 20080703
  Serious: No
  Sender: FDA-Public Use
  Company Number: None

PATIENT
  Sex: Female
  Weight: 75 kg

DRUGS (1)
  1. BIAXIN XL [Suspect]
     Indication: DERMAL CYST
     Dosage: 2 CO OF 500 MG ONCE A DAY PO
     Route: 048
     Dates: start: 20080121, end: 20080127

REACTIONS (3)
  - DRY MOUTH [None]
  - GINGIVAL DISORDER [None]
  - TONGUE DRY [None]
